FAERS Safety Report 5008346-3 (Version None)
Quarter: 2006Q2

REPORT INFORMATION
  Report Type: 
  Country: None (occurrence: None)
  Receive Date: 20060523
  Receipt Date: 20060124
  Transmission Date: 20061013
  Serious: Yes (Other)
  Sender: FDA-Public Use
  Company Number: US-AVENTIS-200610980US

PATIENT
  Sex: Female
  Weight: 162 kg

DRUGS (19)
  1. KETEK [Suspect]
     Route: 048
     Dates: start: 20060105, end: 20060105
  2. NYQUIL [Suspect]
     Dosage: DOSE: UNK
  3. KALETRA [Concomitant]
     Dosage: DOSE: 4 CAPSULES
     Route: 048
  4. HIVID [Concomitant]
     Dosage: DOSE: UNK
  5. LOPINAVIR [Concomitant]
     Dosage: DOSE: UNK
  6. DAPSONE [Concomitant]
  7. SUSTIVA [Concomitant]
  8. MOTRIN [Concomitant]
     Route: 048
  9. ZALCITABINE [Concomitant]
     Route: 048
  10. ZOLOFT [Concomitant]
     Route: 048
  11. GARLIC [Concomitant]
     Dosage: DOSE: UNK
  12. AMBIEN [Concomitant]
     Route: 048
  13. GRAPE SEED [Concomitant]
     Dosage: DOSE: UNK
  14. MEDROXYPR AC [Concomitant]
     Dosage: DOSE: UNK
  15. CENESTIN [Concomitant]
     Dosage: DOSE: UNK
  16. CEPHALEXIN [Concomitant]
     Dosage: DOSE: UNK
  17. METRONIDAZOLE [Concomitant]
     Dosage: DOSE: UNK
  18. COUGH AND COLD PREPARATIONS [Concomitant]
     Dosage: DOSE: UNK
  19. AMOXICILLIN [Concomitant]

REACTIONS (18)
  - ALANINE AMINOTRANSFERASE INCREASED [None]
  - APHASIA [None]
  - ASPARTATE AMINOTRANSFERASE INCREASED [None]
  - ASTHENIA [None]
  - BLOOD ALKALINE PHOSPHATASE INCREASED [None]
  - FATIGUE [None]
  - FEELING ABNORMAL [None]
  - GLOMERULAR FILTRATION RATE DECREASED [None]
  - HEADACHE [None]
  - HYPOKINESIA [None]
  - LETHARGY [None]
  - MENTAL STATUS CHANGES [None]
  - MYASTHENIA GRAVIS [None]
  - PARALYSIS [None]
  - PHARYNGOLARYNGEAL PAIN [None]
  - RED BLOOD CELL COUNT DECREASED [None]
  - RHINORRHOEA [None]
  - SINUSITIS [None]
